FAERS Safety Report 16403548 (Version 2)
Quarter: 2019Q3

REPORT INFORMATION
  Report Type: Spontaneous
  Country: GB (occurrence: GB)
  Receive Date: 20190607
  Receipt Date: 20190821
  Transmission Date: 20191004
  Serious: Yes (Disabling, Congenital Anomaly)
  Sender: FDA-Public Use
  Company Number: GB-AUROBINDO-07-AUR-00543

PATIENT

DRUGS (3)
  1. CITALOPRAM FILM-COATED TABLETS 20MG [Suspect]
     Active Substance: CITALOPRAM HYDROBROMIDE
     Indication: ANXIETY
     Dosage: 20 MILLIGRAM, UNK
     Route: 065
     Dates: start: 200202
  2. CITALOPRAM FILM-COATED TABLETS 20MG [Suspect]
     Active Substance: CITALOPRAM HYDROBROMIDE
     Indication: DEPRESSION
     Dosage: 20 MILLIGRAM, UNK
     Route: 065
     Dates: start: 200208
  3. ST JOHNS WORT [Concomitant]
     Active Substance: ST. JOHN^S WORT
     Indication: DEPRESSION
     Dosage: 1 DOSAGE FORM, UNK
     Route: 048
     Dates: start: 200206, end: 200208

REACTIONS (2)
  - Acquired epileptic aphasia [Not Recovered/Not Resolved]
  - Paternal exposure timing unspecified [Unknown]
